FAERS Safety Report 9837523 (Version 1)
Quarter: 2013Q4

REPORT INFORMATION
  Report Type: Spontaneous
  Country: US (occurrence: None)
  Receive Date: 20131205
  Receipt Date: 20131205
  Transmission Date: 20140711
  Serious: Yes (Other)
  Sender: FDA-Public Use
  Company Number: 163-POMAL-13093412

PATIENT
  Age: 81 Year
  Sex: Male

DRUGS (14)
  1. POMALYST (POMALIDOMIDE) (2 MILLIGRAM, CAPSULES) [Suspect]
     Route: 048
     Dates: start: 20130624
  2. NITROSTAT (GLYCERYL TRINITRATE) [Concomitant]
  3. LEVOFLOXACIN (LEVOFLOXACIN) [Concomitant]
  4. ISOSORBIDE (ISOSORBIDE)(TABLETS) [Concomitant]
  5. ALBUTEROL (SALBUTMAOL)(SOLUTION) [Concomitant]
  6. OXYCONTIN (OXYCODONE HYDROCHLORIDE) (TABLETS) [Concomitant]
  7. ZOCOR (SIMVASTATIN)(TABLETS) [Concomitant]
  8. DEXAMETHASONE (DEXAMETHASONE)(TABLETS) [Concomitant]
  9. IMDUR (ISOSORBIDE MONONITRATE) (TABLETS) [Concomitant]
  10. ACYCLOVIR (ACICLOVIR) (ACICLOVIR) [Concomitant]
  11. ASPIRIN [Concomitant]
  12. VITAMIN B12 (CYANOCOBALMIN) (UNKNOWN) [Concomitant]
  13. VITAMIN D (ERGOCALCIFEROL) [Concomitant]
  14. VITAMIN B1 (THIAMINE HYDROCHLORIDE) [Concomitant]

REACTIONS (6)
  - Full blood count decreased [None]
  - Back pain [None]
  - Cough [None]
  - Fatigue [None]
  - Candida infection [None]
  - Drug dose omission [None]
